FAERS Safety Report 5279720-5 (Version None)
Quarter: 2007Q1

REPORT INFORMATION
  Report Type: 
  Country: None (occurrence: None)
  Receive Date: 20061213
  Receipt Date: 20060530
  Transmission Date: 20070707
  Serious: No
  Sender: FDA-Public Use
  Company Number: 2006UW10349

PATIENT
  Age: 47 Year
  Sex: Female
  Weight: 58.513 kg

DRUGS (5)
  1. SEROQUEL [Suspect]
     Indication: BIPOLAR DISORDER
  2. CYCLOBENZAPRINE HCL [Concomitant]
  3. CYMBALTA [Concomitant]
  4. ZEGERID [Concomitant]
  5. ZELNORM [Concomitant]

REACTIONS (6)
  - CONVULSION [None]
  - DRY MOUTH [None]
  - ERUCTATION [None]
  - NAUSEA [None]
  - SOMNOLENCE [None]
  - URINE ABNORMALITY [None]
